FAERS Safety Report 16209938 (Version 1)
Quarter: 2019Q2

REPORT INFORMATION
  Report Type: Spontaneous
  Country: FR (occurrence: FR)
  Receive Date: 20190417
  Receipt Date: 20190417
  Transmission Date: 20190711
  Serious: Yes (Other)
  Sender: FDA-Public Use
  Company Number: FR-009507513-1904FRA004840

PATIENT
  Sex: Female

DRUGS (4)
  1. EZETROL [Suspect]
     Active Substance: EZETIMIBE
     Dosage: UNK
     Route: 048
     Dates: start: 201812
  2. LEVOTHYROX [Suspect]
     Active Substance: LEVOTHYROXINE
     Dosage: UNK
  3. EZETROL [Suspect]
     Active Substance: EZETIMIBE
     Dosage: UNK
     Route: 048
     Dates: start: 2009, end: 201804
  4. LEVOTHYROX [Suspect]
     Active Substance: LEVOTHYROXINE
     Dosage: UNK
     Dates: start: 2017

REACTIONS (6)
  - Ureteric cancer [Unknown]
  - Malignant polyp [Unknown]
  - Weight decreased [Unknown]
  - Nasal cavity cancer [Unknown]
  - Hyperkeratosis [Unknown]
  - Alopecia [Unknown]

NARRATIVE: CASE EVENT DATE: 2012
